FAERS Safety Report 9415884 (Version 4)
Quarter: 2013Q4

REPORT INFORMATION
  Report Type: Spontaneous
  Country: US (occurrence: US)
  Receive Date: 20130724
  Receipt Date: 20131230
  Transmission Date: 20140711
  Serious: Yes (Other)
  Sender: FDA-Public Use
  Company Number: US-BIOGENIDEC-2013BI065563

PATIENT
  Sex: Female

DRUGS (1)
  1. AVONEX [Suspect]
     Indication: MULTIPLE SCLEROSIS
     Route: 030
     Dates: start: 201108

REACTIONS (5)
  - Myocardial infarction [Recovered/Resolved]
  - Meningioma [Unknown]
  - Injection site hypertrophy [Unknown]
  - Stress [Unknown]
  - Memory impairment [Unknown]
